FAERS Safety Report 6876907-2 (Version None)
Quarter: 2010Q3

REPORT INFORMATION
  Report Type: 
  Country: None (occurrence: None)
  Receive Date: 20100727
  Receipt Date: 20100722
  Transmission Date: 20110219
  Serious: Yes (Death, Life-Threatening, Hospitalization)
  Sender: FDA-Public Use
  Company Number: IN-AMGEN-UK247578

PATIENT
  Sex: Male

DRUGS (7)
  1. DENOSUMAB [Suspect]
     Indication: METASTASES TO BONE
     Route: 058
     Dates: start: 20070824, end: 20071019
  2. ZOMETA [Suspect]
     Indication: METASTASES TO BONE
     Route: 042
     Dates: start: 20070824, end: 20071019
  3. MORPHINE [Concomitant]
     Route: 048
  4. HEPARIN [Concomitant]
     Route: 058
  5. DUPHALAC [Concomitant]
  6. ETORICOXIB [Concomitant]
     Route: 048
  7. AUGMENTIN '125' [Concomitant]
     Route: 048

REACTIONS (4)
  - HAEMATURIA [None]
  - LOSS OF CONSCIOUSNESS [None]
  - PAIN [None]
  - PULMONARY EMBOLISM [None]
